FAERS Safety Report 14350335 (Version 1)
Quarter: 2018Q1

REPORT INFORMATION
  Report Type: Spontaneous
  Country: US (occurrence: US)
  Receive Date: 20180104
  Receipt Date: 20180104
  Transmission Date: 20180509
  Serious: No
  Sender: FDA-Public Use
  Company Number: US-TEVA-2018-US-843853

PATIENT
  Age: 60 Year
  Sex: Female

DRUGS (2)
  1. AUSTEDO [Suspect]
     Active Substance: DEUTETRABENAZINE
     Indication: HUNTINGTON^S DISEASE
     Dosage: 18MG BID
     Route: 048
     Dates: start: 20170706
  2. AUSTEDO [Suspect]
     Active Substance: DEUTETRABENAZINE
     Dosage: 18MG BID
     Route: 048

REACTIONS (2)
  - Somnolence [Unknown]
  - Hot flush [Unknown]

NARRATIVE: CASE EVENT DATE: 201708
